FAERS Safety Report 5005086-1 (Version None)
Quarter: 2006Q2

REPORT INFORMATION
  Report Type: 
  Country: None (occurrence: None)
  Receive Date: 20060518
  Receipt Date: 20060508
  Transmission Date: 20061013
  Serious: Yes (Hospitalization)
  Sender: FDA-Public Use
  Company Number: JP-ABBOTT-06P-087-0332852-00

PATIENT
  Age: 54 Year
  Sex: Male
  Weight: 60 kg

DRUGS (7)
  1. CLARITHROMYCIN [Suspect]
     Indication: HELICOBACTER INFECTION
     Route: 048
     Dates: start: 20040621, end: 20040627
  2. AMOXICILLIN [Suspect]
     Indication: HELICOBACTER INFECTION
     Route: 048
     Dates: start: 20040621, end: 20040627
  3. LANSOPRAZOLE [Concomitant]
     Indication: HELICOBACTER INFECTION
     Route: 048
     Dates: start: 20040621, end: 20040627
  4. CANDESARTAN CILEXETIL [Concomitant]
     Indication: HYPERTENSION
     Route: 048
     Dates: start: 20030830
  5. AZULENE SULFONATE SODIUM L-GLUTAMINE [Concomitant]
     Indication: GASTRITIS
     Route: 048
     Dates: start: 20020926
  6. CLOTIAZEPAM [Concomitant]
     Indication: HYPERTENSION
     Route: 048
     Dates: start: 20031115
  7. ETIZOLAM [Concomitant]
     Indication: HYPERTENSION
     Route: 048
     Dates: start: 20020926

REACTIONS (3)
  - DIARRHOEA [None]
  - ENTEROCOLITIS HAEMORRHAGIC [None]
  - HEADACHE [None]
